FAERS Safety Report 14718762 (Version 6)
Quarter: 2018Q2

REPORT INFORMATION
  Report Type: Spontaneous
  Country: FR (occurrence: FR)
  Receive Date: 20180405
  Receipt Date: 20180430
  Transmission Date: 20180711
  Serious: Yes (Hospitalization)
  Sender: FDA-Public Use
  Company Number: FR-ROCHE-2101829

PATIENT
  Age: 77 Year
  Sex: Female
  Weight: 66 kg

DRUGS (12)
  1. ALLOPURINOL. [Suspect]
     Active Substance: ALLOPURINOL
     Indication: TUMOUR LYSIS SYNDROME
     Dosage: MOST RECENT DOSE ON 09/FEB/2018
     Route: 048
     Dates: start: 20180206, end: 20180209
  2. NEORECORMON [Concomitant]
     Active Substance: ERYTHROPOIETIN
     Route: 065
  3. ZELITREX [Suspect]
     Active Substance: VALACYCLOVIR HYDROCHLORIDE
     Indication: PROPHYLAXIS
     Dosage: MOST RECENT DOSE ON 19/FEB/2018
     Route: 048
     Dates: start: 20180209, end: 20180219
  4. ECONAZOLE [Concomitant]
     Active Substance: ECONAZOLE
     Route: 065
  5. MABTHERA [Suspect]
     Active Substance: RITUXIMAB
     Indication: LYMPHOMA
     Route: 042
     Dates: start: 20180206, end: 20180206
  6. PRIMPERAN [Concomitant]
     Active Substance: METOCLOPRAMIDE HYDROCHLORIDE
     Route: 065
  7. GRANOCYTE [Concomitant]
     Active Substance: LENOGRASTIM
     Route: 065
  8. BACTRIM [Suspect]
     Active Substance: SULFAMETHOXAZOLE\TRIMETHOPRIM
     Indication: PROPHYLAXIS
     Dosage: MOST RECENT DOSE ON 19/FEB/2018
     Route: 048
     Dates: start: 20180209
  9. ROCEPHINE [Suspect]
     Active Substance: CEFTRIAXONE SODIUM
     Indication: NEUTROPENIA
     Route: 042
     Dates: start: 20180209, end: 20180209
  10. NEULASTA [Suspect]
     Active Substance: PEGFILGRASTIM
     Indication: TUMOUR LYSIS SYNDROME
     Route: 058
     Dates: start: 20180209
  11. BENDAMUSTINE [Suspect]
     Active Substance: BENDAMUSTINE
     Indication: LYMPHOMA
     Dosage: 149 MG, UNK
     Route: 042
     Dates: start: 20180206, end: 20180206
  12. NEULASTA [Suspect]
     Active Substance: PEGFILGRASTIM
     Indication: NEUTROPENIA
     Dosage: DOSE-UNKNOWN
     Route: 058

REACTIONS (4)
  - Hypersensitivity [Recovering/Resolving]
  - Rash maculo-papular [Recovering/Resolving]
  - Hypotension [Recovered/Resolved]
  - Pyrexia [Recovered/Resolved]

NARRATIVE: CASE EVENT DATE: 20180219
